FAERS Safety Report 23479795 (Version 2)
Quarter: 2024Q1

REPORT INFORMATION
  Report Type: Spontaneous
  Country: US (occurrence: US)
  Receive Date: 20240205
  Receipt Date: 20240304
  Transmission Date: 20240410
  Serious: No
  Sender: FDA-Public Use
  Company Number: US-HETERO-HET2024US00286

PATIENT
  Age: 66 Year
  Sex: Female
  Weight: 49.89 kg

DRUGS (1)
  1. ROSUVASTATIN [Suspect]
     Active Substance: ROSUVASTATIN
     Indication: Hypercholesterolaemia
     Dosage: 10 MILLIGRAM, QD
     Route: 048
     Dates: end: 20240131

REACTIONS (1)
  - Dry mouth [Recovering/Resolving]

NARRATIVE: CASE EVENT DATE: 20240130
